FAERS Safety Report 9824510 (Version 2)
Quarter: 2014Q3

REPORT INFORMATION
  Report Type: Spontaneous
  Country: FR (occurrence: FR)
  Receive Date: 20140116
  Receipt Date: 20140911
  Transmission Date: 20150326
  Serious: Yes (Hospitalization)
  Sender: FDA-Public Use
  Company Number: FR-ROCHE-1334245

PATIENT
  Age: 74 Year
  Sex: Male

DRUGS (13)
  1. SPECIAFOLDINE [Concomitant]
     Active Substance: FOLIC ACID
  2. DIFFU K [Concomitant]
     Active Substance: POTASSIUM CHLORIDE
  3. MECIR [Concomitant]
     Active Substance: TAMSULOSIN HYDROCHLORIDE
  4. PARACETAMOL [Concomitant]
     Active Substance: ACETAMINOPHEN
  5. ALIMTA [Suspect]
     Active Substance: PEMETREXED DISODIUM
     Indication: LUNG ADENOCARCINOMA
     Route: 042
     Dates: start: 201311
  6. AMLOR [Concomitant]
     Active Substance: AMLODIPINE BESYLATE
  7. SPASFON (FRANCE) [Concomitant]
     Active Substance: PHLOROGLUCINOL
  8. SOLUPRED (FRANCE) [Concomitant]
     Active Substance: PREDNISOLONE
  9. INEXIUM [Concomitant]
     Active Substance: ESOMEPRAZOLE
  10. AVASTIN [Suspect]
     Active Substance: BEVACIZUMAB
     Indication: LUNG ADENOCARCINOMA
     Route: 042
     Dates: start: 201311
  11. CISPLATINE [Suspect]
     Active Substance: CISPLATIN
     Indication: LUNG ADENOCARCINOMA
     Route: 042
     Dates: start: 201311
  12. PRIMPERAN [Concomitant]
     Active Substance: METOCLOPRAMIDE HYDROCHLORIDE
  13. TOPALGIC (FRANCE) [Concomitant]
     Active Substance: TRAMADOL

REACTIONS (1)
  - Intestinal ischaemia [Not Recovered/Not Resolved]

NARRATIVE: CASE EVENT DATE: 20131228
